FAERS Safety Report 25080611 (Version 1)
Quarter: 2025Q1

REPORT INFORMATION
  Report Type: Spontaneous
  Country: IN (occurrence: IN)
  Receive Date: 20250315
  Receipt Date: 20250315
  Transmission Date: 20250409
  Serious: Yes (Hospitalization, Other)
  Sender: NATCO PHARMA
  Company Number: IN-NATCO-000029

PATIENT
  Age: 42 Year
  Sex: Male

DRUGS (1)
  1. DISULFIRAM [Suspect]
     Active Substance: DISULFIRAM
     Indication: Alcoholism
     Route: 065

REACTIONS (1)
  - Dystonia [Recovered/Resolved]
